FAERS Safety Report 14247774 (Version 5)
Quarter: 2019Q3

REPORT INFORMATION
  Report Type: Report from Study
  Country: JP (occurrence: JP)
  Receive Date: 20171204
  Receipt Date: 20190913
  Transmission Date: 20191004
  Serious: Yes (Death, Other)
  Sender: FDA-Public Use
  Company Number: JP-BRISTOL-MYERS SQUIBB COMPANY-BMS-2017-109440

PATIENT
  Age: 53 Year
  Sex: Male
  Weight: 52 kg

DRUGS (7)
  1. DIFLAL [Concomitant]
     Indication: SKIN DISORDER
     Dosage: 10 GRAM, 15 TUBES FOR THE BODY TRUNK IN THE EVENING
     Route: 061
  2. LOCOID [Concomitant]
     Active Substance: HYDROCORTISONE BUTYRATE
     Indication: SKIN DISORDER
     Dosage: 5 GRAM, 5 TUBES FOR FACE
     Route: 061
  3. RINDERON VG [Concomitant]
     Active Substance: BETAMETHASONE VALERATE\GENTAMICIN SULFATE
     Indication: SKIN DISORDER
     Dosage: 5 GRAM, FOR FINGERTIPS AND AROUND NAILS
     Route: 061
  4. NIVOLUMAB [Suspect]
     Active Substance: NIVOLUMAB
     Indication: HEAD AND NECK CANCER
     Dosage: 3 MILLIGRAM/KILOGRAM
     Route: 041
     Dates: start: 20170510, end: 20170628
  5. MINOMYCIN [Concomitant]
     Active Substance: MINOCYCLINE HYDROCHLORIDE
     Indication: SKIN DISORDER
     Dosage: 2 DOSAGE FORM, QD (AFTER BREAKFAST AND DINNER)
     Route: 048
  6. MYSER                              /01249201/ [Concomitant]
     Active Substance: DIFLUPREDNATE
     Indication: SKIN DISORDER
     Dosage: 10 GRAM, 15 TUBES FOR THE BODY TRUNK IN THE MORNING
     Route: 061
  7. ZINC OXIDE. [Concomitant]
     Active Substance: ZINC OXIDE
     Indication: SKIN DISORDER
     Dosage: 5 GRAM, FOR FINGERTIPS AND AROUND NAILS
     Route: 061

REACTIONS (2)
  - Malignant neoplasm progression [Fatal]
  - Haematemesis [Fatal]

NARRATIVE: CASE EVENT DATE: 20170629
